FAERS Safety Report 9519792 (Version 2)
Quarter: 2013Q3

REPORT INFORMATION
  Report Type: Report from Study
  Country: US (occurrence: US)
  Receive Date: 20130912
  Receipt Date: 20130912
  Transmission Date: 20140515
  Serious: Yes (Hospitalization, Other)
  Sender: FDA-Public Use
  Company Number: US-US-EMD SERONO, INC.-7215036

PATIENT
  Age: 36 Year
  Sex: Male
  Weight: 77 kg

DRUGS (6)
  1. REBIF [Suspect]
     Indication: MULTIPLE SCLEROSIS
     Route: 058
     Dates: start: 201208
  2. REBIF [Suspect]
  3. REBIF [Suspect]
     Dates: start: 20130205
  4. LYRICA [Concomitant]
     Indication: MULTIPLE SCLEROSIS
  5. GABAPENTIN [Concomitant]
     Indication: MULTIPLE SCLEROSIS
  6. BACLOFEN [Concomitant]
     Indication: PRODUCT USED FOR UNKNOWN INDICATION

REACTIONS (12)
  - Cerebral atrophy [Unknown]
  - Multiple sclerosis relapse [Recovering/Resolving]
  - White blood cell count increased [Recovered/Resolved]
  - Insomnia [Unknown]
  - Nausea [Unknown]
  - Asthenia [Unknown]
  - Movement disorder [Unknown]
  - Frequent bowel movements [Unknown]
  - Burning sensation [Not Recovered/Not Resolved]
  - Hyperthyroidism [Recovered/Resolved]
  - Leukopenia [Recovering/Resolving]
  - Liver function test abnormal [Recovering/Resolving]
